FAERS Safety Report 16994448 (Version 1)
Quarter: 2019Q4

REPORT INFORMATION
  Report Type: Spontaneous
  Country: MA (occurrence: MA)
  Receive Date: 20191105
  Receipt Date: 20191105
  Transmission Date: 20200122
  Serious: Yes (Hospitalization, Other)
  Sender: FDA-Public Use
  Company Number: MA-STRIDES ARCOLAB LIMITED-2019SP010987

PATIENT
  Age: 62 Year
  Sex: Male

DRUGS (2)
  1. IBUPROFEN. [Suspect]
     Active Substance: IBUPROFEN
     Indication: PRODUCT USED FOR UNKNOWN INDICATION
     Dosage: UNK
     Route: 065
  2. ACENOCOUMAROL [Suspect]
     Active Substance: ACENOCOUMAROL
     Indication: ATRIAL FIBRILLATION
     Dosage: UNK
     Route: 065

REACTIONS (7)
  - Pulmonary alveolar haemorrhage [Unknown]
  - Rales [Unknown]
  - Tachypnoea [Unknown]
  - Tachycardia [Unknown]
  - Self-medication [Unknown]
  - Haemoptysis [Unknown]
  - Dyspnoea [Unknown]
